FAERS Safety Report 8686499 (Version 3)
Quarter: 2017Q1

REPORT INFORMATION
  Report Type: Spontaneous
  Country: US (occurrence: US)
  Receive Date: 20120726
  Receipt Date: 20170324
  Transmission Date: 20170429
  Serious: Yes (Other)
  Sender: FDA-Public Use
  Company Number: US-ASTRAZENECA-2011SE05819

PATIENT
  Age: 57 Year
  Sex: Female
  Weight: 91.6 kg

DRUGS (37)
  1. SEROQUEL [Suspect]
     Active Substance: QUETIAPINE FUMARATE
     Indication: ANXIETY
     Dosage: 300 MG AT NIGHT AND AN ADDITIONAL 50 MG THREE TIMES DAILY
     Route: 048
     Dates: start: 2005
  2. SEROQUEL [Suspect]
     Active Substance: QUETIAPINE FUMARATE
     Indication: EPILEPSY
     Dosage: 25.0MG UNKNOWN
     Route: 048
  3. SEROQUEL [Suspect]
     Active Substance: QUETIAPINE FUMARATE
     Indication: INSOMNIA
     Dosage: 25.0MG UNKNOWN
     Route: 048
  4. SEROQUEL [Suspect]
     Active Substance: QUETIAPINE FUMARATE
     Indication: SLEEP DISORDER
     Dosage: 17 TABLETS OF THE 25MG UNKNOWN
     Route: 048
  5. SEROQUEL [Suspect]
     Active Substance: QUETIAPINE FUMARATE
     Indication: ANXIETY
     Dosage: 17 TABLETS OF THE 25MG UNKNOWN
     Route: 048
  6. SEROQUEL [Suspect]
     Active Substance: QUETIAPINE FUMARATE
     Indication: BIPOLAR DISORDER
     Dosage: 300 MG AT NIGHT AND AN ADDITIONAL 50 MG THREE TIMES DAILY
     Route: 048
     Dates: start: 2005
  7. SEROQUEL [Suspect]
     Active Substance: QUETIAPINE FUMARATE
     Indication: BIPOLAR DISORDER
     Route: 048
  8. SEROQUEL [Suspect]
     Active Substance: QUETIAPINE FUMARATE
     Indication: INSOMNIA
     Route: 048
  9. SEROQUEL [Suspect]
     Active Substance: QUETIAPINE FUMARATE
     Indication: BIPOLAR DISORDER
     Dosage: 100.0MG UNKNOWN
     Route: 048
  10. SEROQUEL [Suspect]
     Active Substance: QUETIAPINE FUMARATE
     Indication: BIPOLAR DISORDER
     Dosage: 17 TABLETS OF THE 25MG UNKNOWN
     Route: 048
  11. SEROQUEL [Suspect]
     Active Substance: QUETIAPINE FUMARATE
     Indication: INSOMNIA
     Dosage: 17 TABLETS OF THE 25MG UNKNOWN
     Route: 048
  12. SEROQUEL [Suspect]
     Active Substance: QUETIAPINE FUMARATE
     Indication: SLEEP DISORDER
     Dosage: 100.0MG UNKNOWN
     Route: 048
     Dates: start: 200608
  13. LYRICA [Concomitant]
     Active Substance: PREGABALIN
     Indication: FIBROMYALGIA
     Route: 048
  14. SEROQUEL [Suspect]
     Active Substance: QUETIAPINE FUMARATE
     Indication: SLEEP DISORDER
     Route: 048
  15. SEROQUEL [Suspect]
     Active Substance: QUETIAPINE FUMARATE
     Indication: ANXIETY
     Dosage: 100.0MG UNKNOWN
     Route: 048
  16. SEROQUEL [Suspect]
     Active Substance: QUETIAPINE FUMARATE
     Indication: BIPOLAR DISORDER
     Dosage: 450 MG AT NIGHT AT 8PM AND 50 MG AT 6AM, 50 MG AT 12PM, AND 50 MG AT 6PM UNKNOWN
     Route: 048
  17. SEROQUEL [Suspect]
     Active Substance: QUETIAPINE FUMARATE
     Indication: INSOMNIA
     Dosage: 450 MG AT NIGHT AT 8PM AND 50 MG AT 6AM, 50 MG AT 12PM, AND 50 MG AT 6PM UNKNOWN
     Route: 048
  18. SEROQUEL [Suspect]
     Active Substance: QUETIAPINE FUMARATE
     Indication: SLEEP DISORDER
     Dosage: 300 MG AT NIGHT AND AN ADDITIONAL 50 MG THREE TIMES DAILY
     Route: 048
     Dates: start: 2005
  19. SEROQUEL [Suspect]
     Active Substance: QUETIAPINE FUMARATE
     Indication: EPILEPSY
     Dosage: 300 MG AT NIGHT AND AN ADDITIONAL 50 MG THREE TIMES DAILY
     Route: 048
     Dates: start: 2005
  20. SEROQUEL [Suspect]
     Active Substance: QUETIAPINE FUMARATE
     Indication: SLEEP DISORDER
     Dosage: 25.0MG UNKNOWN
     Route: 048
  21. SEROQUEL [Suspect]
     Active Substance: QUETIAPINE FUMARATE
     Indication: EPILEPSY
     Dosage: 100.0MG UNKNOWN
     Route: 048
  22. SEROQUEL [Suspect]
     Active Substance: QUETIAPINE FUMARATE
     Indication: BIPOLAR DISORDER
     Dosage: 100.0MG UNKNOWN
     Route: 048
     Dates: start: 200608
  23. SEROQUEL [Suspect]
     Active Substance: QUETIAPINE FUMARATE
     Indication: INSOMNIA
     Dosage: 100.0MG UNKNOWN
     Route: 048
     Dates: start: 200608
  24. SEROQUEL [Suspect]
     Active Substance: QUETIAPINE FUMARATE
     Indication: ANXIETY
     Dosage: 450 MG AT NIGHT AT 8PM AND 50 MG AT 6AM, 50 MG AT 12PM, AND 50 MG AT 6PM UNKNOWN
     Route: 048
  25. SEROQUEL [Suspect]
     Active Substance: QUETIAPINE FUMARATE
     Indication: EPILEPSY
     Route: 048
  26. SEROQUEL [Suspect]
     Active Substance: QUETIAPINE FUMARATE
     Indication: ANXIETY
     Route: 048
  27. SEROQUEL [Suspect]
     Active Substance: QUETIAPINE FUMARATE
     Indication: BIPOLAR DISORDER
     Dosage: 25.0MG UNKNOWN
     Route: 048
  28. SEROQUEL [Suspect]
     Active Substance: QUETIAPINE FUMARATE
     Indication: EPILEPSY
     Dosage: 17 TABLETS OF THE 25MG UNKNOWN
     Route: 048
  29. SEROQUEL [Suspect]
     Active Substance: QUETIAPINE FUMARATE
     Indication: ANXIETY
     Dosage: 100.0MG UNKNOWN
     Route: 048
     Dates: start: 200608
  30. SEROQUEL [Suspect]
     Active Substance: QUETIAPINE FUMARATE
     Indication: SLEEP DISORDER
     Dosage: 450 MG AT NIGHT AT 8PM AND 50 MG AT 6AM, 50 MG AT 12PM, AND 50 MG AT 6PM UNKNOWN
     Route: 048
  31. SEROQUEL [Suspect]
     Active Substance: QUETIAPINE FUMARATE
     Indication: EPILEPSY
     Dosage: 100.0MG UNKNOWN
     Route: 048
     Dates: start: 200608
  32. SEROQUEL [Suspect]
     Active Substance: QUETIAPINE FUMARATE
     Indication: EPILEPSY
     Dosage: 450 MG AT NIGHT AT 8PM AND 50 MG AT 6AM, 50 MG AT 12PM, AND 50 MG AT 6PM UNKNOWN
     Route: 048
  33. SEROQUEL [Suspect]
     Active Substance: QUETIAPINE FUMARATE
     Indication: INSOMNIA
     Dosage: 300 MG AT NIGHT AND AN ADDITIONAL 50 MG THREE TIMES DAILY
     Route: 048
     Dates: start: 2005
  34. SEROQUEL [Suspect]
     Active Substance: QUETIAPINE FUMARATE
     Indication: ANXIETY
     Dosage: 25.0MG UNKNOWN
     Route: 048
  35. SEROQUEL [Suspect]
     Active Substance: QUETIAPINE FUMARATE
     Indication: SLEEP DISORDER
     Dosage: 100.0MG UNKNOWN
     Route: 048
  36. SEROQUEL [Suspect]
     Active Substance: QUETIAPINE FUMARATE
     Indication: INSOMNIA
     Dosage: 100.0MG UNKNOWN
     Route: 048
  37. NEURONTIN [Concomitant]
     Active Substance: GABAPENTIN

REACTIONS (13)
  - Intentional product misuse [Not Recovered/Not Resolved]
  - Nightmare [Unknown]
  - Seizure [Not Recovered/Not Resolved]
  - Head injury [Unknown]
  - Fall [Unknown]
  - Bone disorder [Unknown]
  - Weight increased [Unknown]
  - Product use issue [Not Recovered/Not Resolved]
  - Drug ineffective [Unknown]
  - Product use issue [Unknown]
  - Drug dose omission [Unknown]
  - Incorrect dose administered [Unknown]
  - Off label use [Not Recovered/Not Resolved]

NARRATIVE: CASE EVENT DATE: 200605
